FAERS Safety Report 25272398 (Version 1)
Quarter: 2025Q2

REPORT INFORMATION
  Report Type: Spontaneous
  Country: US (occurrence: US)
  Receive Date: 20250506
  Receipt Date: 20250506
  Transmission Date: 20250717
  Serious: Yes (Hospitalization, Other)
  Sender: ZYDUS PHARM
  Company Number: US-CADILA HEALTHCARE LIMITED-US-ZYDUS-122596

PATIENT

DRUGS (1)
  1. AMIODARONE [Suspect]
     Active Substance: AMIODARONE
     Indication: Ventricular tachycardia
     Route: 048

REACTIONS (6)
  - Hepatic failure [Recovered/Resolved]
  - Portal hypertension [Unknown]
  - Ascites [Recovering/Resolving]
  - Hepatotoxicity [Unknown]
  - Hepatic cirrhosis [Recovering/Resolving]
  - Renal failure [Recovered/Resolved]
